FAERS Safety Report 12894126 (Version 1)
Quarter: 2016Q4

REPORT INFORMATION
  Report Type: Spontaneous
  Country: FR (occurrence: FR)
  Receive Date: 20161028
  Receipt Date: 20161028
  Transmission Date: 20170207
  Serious: Yes (Life-Threatening, Hospitalization)
  Sender: FDA-Public Use
  Company Number: FR-PFIZER INC-3230450

PATIENT
  Age: 63 Year
  Sex: Female

DRUGS (2)
  1. CAELYX [Suspect]
     Active Substance: DOXORUBICIN HYDROCHLORIDE
     Indication: OVARIAN EPITHELIAL CANCER
     Dosage: FREQ: CYCLICAL
     Route: 042
     Dates: start: 20151209
  2. CARBOPLATIN. [Suspect]
     Active Substance: CARBOPLATIN
     Dosage: 600 MG, FREQ: CYCLICAL
     Route: 042
     Dates: start: 20151209

REACTIONS (4)
  - Septic shock [Recovered/Resolved]
  - Thrombocytopenia [Recovered/Resolved]
  - Haemorrhagic diathesis [Recovered/Resolved]
  - Urinary tract infection [Unknown]
